FAERS Safety Report 21614877 (Version 1)
Quarter: 2022Q4

REPORT INFORMATION
  Report Type: Spontaneous
  Country: US (occurrence: US)
  Receive Date: 20221118
  Receipt Date: 20221118
  Transmission Date: 20230112
  Serious: No
  Sender: FDA-Public Use
  Company Number: US-PFIZER INC-PV202200073906

PATIENT
  Age: 55 Year
  Sex: Male
  Weight: 89.36 kg

DRUGS (5)
  1. VFEND [Suspect]
     Active Substance: VORICONAZOLE
     Indication: Aspergillus infection
     Dosage: 300 MG, 2X/DAY (200 MG TAB, TAKE 1 TAB BID PLUS 50 MG, TAKE 2 TABS BID)
  2. VFEND [Suspect]
     Active Substance: VORICONAZOLE
     Indication: Lung transplant
     Dosage: 350 MG, 2X/DAY (50 MG TAKE 3 TABS BID, 200 MG ONE TAB BID)
     Dates: start: 20220915
  3. PREDNISONE [Concomitant]
     Active Substance: PREDNISONE
     Dosage: UNK
  4. CELLCEPT [Concomitant]
     Active Substance: MYCOPHENOLATE MOFETIL
     Dosage: UNK
  5. TACROLIMUS [Concomitant]
     Active Substance: TACROLIMUS
     Dosage: UNK

REACTIONS (3)
  - COVID-19 [Unknown]
  - Musculoskeletal discomfort [Unknown]
  - Off label use [Unknown]

NARRATIVE: CASE EVENT DATE: 20220915
